FAERS Safety Report 5820170-8 (Version None)
Quarter: 2008Q3

REPORT INFORMATION
  Report Type: 
  Country: None (occurrence: None)
  Receive Date: 20080724
  Receipt Date: 20080716
  Transmission Date: 20090109
  Serious: Yes (Hospitalization, Other)
  Sender: FDA-Public Use
  Company Number: PHBS2008ES05147

PATIENT
  Age: 76 Year
  Sex: Female

DRUGS (4)
  1. VALSARTAN [Suspect]
  2. HYDROCHLOROTHIAZIDE [Suspect]
  3. ALLOPURINOL [Suspect]
  4. CLOPIDOGREL [Suspect]

REACTIONS (24)
  - ANOREXIA [None]
  - ARTHRALGIA [None]
  - ASTHENIA [None]
  - CHOLESTASIS [None]
  - COUGH [None]
  - DERMATITIS [None]
  - DERMATITIS EXFOLIATIVE [None]
  - DISCOMFORT [None]
  - DISORIENTATION [None]
  - DRUG RASH WITH EOSINOPHILIA AND SYSTEMIC SYMPTOMS [None]
  - DYSPNOEA [None]
  - ENTEROCOCCAL INFECTION [None]
  - EOSINOPHILIA [None]
  - FATIGUE [None]
  - HYPOTENSION [None]
  - LOSS OF CONSCIOUSNESS [None]
  - MYALGIA [None]
  - PRURITUS [None]
  - PURPURA [None]
  - PYREXIA [None]
  - RASH PUSTULAR [None]
  - RENAL FAILURE [None]
  - SKIN EXFOLIATION [None]
  - VASCULITIS [None]
